FAERS Safety Report 13314436 (Version 2)
Quarter: 2017Q1

REPORT INFORMATION
  Report Type: Spontaneous
  Country: FI (occurrence: FI)
  Receive Date: 20170309
  Receipt Date: 20170324
  Transmission Date: 20170428
  Serious: Yes (Other)
  Sender: FDA-Public Use
  Company Number: FI-SA-2017SA036101

PATIENT
  Age: 77 Year
  Sex: Male

DRUGS (7)
  1. EMCONCOR [Concomitant]
     Active Substance: BISOPROLOL FUMARATE
     Indication: ATRIAL FIBRILLATION
     Route: 065
  2. PANACOD [Concomitant]
     Active Substance: ACETAMINOPHEN\CODEINE PHOSPHATE
     Indication: PAIN
     Route: 065
  3. JANUVIA [Concomitant]
     Active Substance: SITAGLIPTIN PHOSPHATE
     Indication: TYPE 2 DIABETES MELLITUS
     Route: 065
  4. ENANTON - SLOW RELEASE [Concomitant]
     Indication: BLOOD TESTOSTERONE INCREASED
     Route: 065
  5. KLEXANE [Suspect]
     Active Substance: ENOXAPARIN
     Indication: AORTIC VALVE REPLACEMENT
     Dosage: DOSE:100 MILLIGRAM(S)/MILLILITRE
     Route: 065
  6. IMOVANE [Concomitant]
     Active Substance: ZOPICLONE
     Indication: HYPNOTHERAPY
     Route: 065
  7. BURANA [Concomitant]
     Active Substance: IBUPROFEN
     Indication: PAIN
     Route: 065

REACTIONS (3)
  - Muscular weakness [Not Recovered/Not Resolved]
  - Injury associated with device [Unknown]
  - Prostate cancer [Not Recovered/Not Resolved]

NARRATIVE: CASE EVENT DATE: 2016
